FAERS Safety Report 8837538 (Version 1)
Quarter: 2012Q4

REPORT INFORMATION
  Report Type: 
  Country: US (occurrence: US)
  Receive Date: 20121012
  Receipt Date: 20121012
  Transmission Date: 20130627
  Serious: No
  Sender: FDA-Public Use
  Company Number: US-PFIZER INC-2012252693

PATIENT
  Age: 53 Year
  Sex: Male
  Weight: 68.93 kg

DRUGS (2)
  1. LYRICA [Suspect]
     Indication: FIBROMYALGIA
     Dosage: 75 mg, 1x/day
     Route: 048
  2. LEVOTHYROXINE [Concomitant]
     Indication: THYROID DISORDER
     Dosage: UNK

REACTIONS (3)
  - Depressed mood [Recovered/Resolved]
  - Feeling abnormal [Recovered/Resolved]
  - Emotional disorder [Recovered/Resolved]
